FAERS Safety Report 9721317 (Version 1)
Quarter: 2013Q4

REPORT INFORMATION
  Report Type: Spontaneous
  Country: US (occurrence: US)
  Receive Date: 20131129
  Receipt Date: 20131129
  Transmission Date: 20140711
  Serious: No
  Sender: FDA-Public Use
  Company Number: US-PFIZER INC-2013339563

PATIENT
  Age: 62 Year
  Sex: Female
  Weight: 76.2 kg

DRUGS (1)
  1. AROMASIN [Suspect]
     Indication: HAEMATOLOGICAL MALIGNANCY
     Dosage: 25 MG, DAILY
     Dates: start: 2013

REACTIONS (6)
  - Dry skin [Unknown]
  - Constipation [Unknown]
  - Dry mouth [Unknown]
  - Vulvovaginal dryness [Unknown]
  - Arthralgia [Unknown]
  - Intentional drug misuse [Not Recovered/Not Resolved]
